FAERS Safety Report 7767972-9 (Version None)
Quarter: 2011Q3

REPORT INFORMATION
  Report Type: 
  Country: None (occurrence: None)
  Receive Date: 20110922
  Receipt Date: 20110223
  Transmission Date: 20111222
  Serious: No
  Sender: FDA-Public Use
  Company Number: US-ASTRAZENECA-2007UW02014

PATIENT
  Age: 13795 Day
  Sex: Female
  Weight: 88 kg

DRUGS (22)
  1. CLONAZEPAM [Concomitant]
     Dosage: 0.5-1 MG
     Dates: start: 20021205
  2. SEROQUEL [Suspect]
     Dosage: 100-500MG
     Route: 048
     Dates: start: 20040505, end: 20050913
  3. AMBIEN [Concomitant]
     Dates: start: 20020419
  4. ABILIFY [Concomitant]
     Dates: start: 20050929
  5. ZOMIG [Concomitant]
     Dates: start: 20001113
  6. PAXIL [Concomitant]
     Dosage: 12.5-30 MG Q PM
     Dates: start: 20021108
  7. RISPERDAL (REISPERIDONE) [Concomitant]
     Dates: start: 20030326
  8. DEPAKOTE ER [Concomitant]
     Dates: start: 20020101
  9. DEPAKOTE ER [Concomitant]
     Dates: start: 20030305
  10. EFFEXOR XR [Concomitant]
     Dosage: 150 MG - 275 MG
     Dates: start: 20030702
  11. SEROQUEL [Suspect]
     Indication: MAJOR DEPRESSION
     Route: 048
     Dates: start: 20020101
  12. MECLIZINE [Concomitant]
     Dosage: 25 MG PO Q 4-6 HR
     Route: 048
     Dates: start: 20030101
  13. TRAZODONE HYDROCHLORIDE [Concomitant]
     Dosage: 50-100 MG
     Dates: start: 20021015
  14. WELLBUTRIN [Concomitant]
  15. SEROQUEL [Suspect]
     Dosage: 25MG-400 MG
     Route: 048
     Dates: start: 20031105
  16. CLONAZEPAM [Concomitant]
     Dosage: 0.5 MG PO QAM AND 1 MG PO QHS
     Route: 048
     Dates: start: 20030101
  17. EFFEXOR XR [Concomitant]
     Dosage: 150 MG P O QAM AND AT NOON
     Route: 048
     Dates: start: 20020101
  18. LIPITOR [Concomitant]
     Indication: HYPERLIPIDAEMIA
     Route: 048
     Dates: start: 20051013
  19. GEODON [Concomitant]
     Dates: start: 20020101, end: 20031216
  20. ZYPREXA/SYMBYAX (OLANZAPINE) [Concomitant]
  21. DEPAKOTE ER [Concomitant]
     Dosage: 500-1500MG
     Dates: start: 20040501
  22. MECLIZINE [Concomitant]
     Indication: DIZZINESS
     Dates: start: 20021108

REACTIONS (15)
  - NAUSEA [None]
  - MUSCULAR WEAKNESS [None]
  - RESPIRATORY TRACT INFECTION [None]
  - FUNGAL INFECTION [None]
  - PAIN IN EXTREMITY [None]
  - ABSCESS [None]
  - HYPERGLYCAEMIA [None]
  - GLUCOSE TOLERANCE IMPAIRED [None]
  - URINE KETONE BODY [None]
  - TYPE 1 DIABETES MELLITUS [None]
  - ARTHRALGIA [None]
  - OROPHARYNGEAL PAIN [None]
  - TYPE 2 DIABETES MELLITUS [None]
  - HYPERLIPIDAEMIA [None]
  - OEDEMA GENITAL [None]
